FAERS Safety Report 22900421 (Version 2)
Quarter: 2023Q4

REPORT INFORMATION
  Report Type: Report from Study
  Country: US (occurrence: US)
  Receive Date: 20230904
  Receipt Date: 20231201
  Transmission Date: 20240110
  Serious: Yes (Hospitalization, Other)
  Sender: FDA-Public Use
  Company Number: US-002147023-NVSC2023US189812

PATIENT
  Age: 81 Year
  Sex: Male

DRUGS (1)
  1. TASIGNA [Suspect]
     Active Substance: NILOTINIB
     Indication: Product used for unknown indication
     Dosage: 150 MG
     Route: 048

REACTIONS (4)
  - Malaise [Unknown]
  - Cerebrovascular accident [Unknown]
  - Hypoacusis [Unknown]
  - Illness [Unknown]

NARRATIVE: CASE EVENT DATE: 20230827
